FAERS Safety Report 5887859-6 (Version None)
Quarter: 2008Q3

REPORT INFORMATION
  Report Type: 
  Country: None (occurrence: None)
  Receive Date: 20080917
  Receipt Date: 20080917
  Transmission Date: 20090109
  Serious: Yes (Life-Threatening, Other)
  Sender: FDA-Public Use
  Company Number: None

PATIENT
  Age: 31 Year
  Sex: Female
  Weight: 54.4316 kg

DRUGS (1)
  1. OMNICEF [Suspect]
     Indication: SINUSITIS
     Dosage: 2 A DAY PO
     Route: 048
     Dates: start: 20080908, end: 20080910

REACTIONS (1)
  - CLOSTRIDIAL INFECTION [None]
